FAERS Safety Report 5000134-7 (Version None)
Quarter: 2006Q2

REPORT INFORMATION
  Report Type: 
  Country: None (occurrence: None)
  Receive Date: 20060510
  Receipt Date: 20060428
  Transmission Date: 20061013
  Serious: Yes (Life-Threatening, Hospitalization, Other)
  Sender: FDA-Public Use
  Company Number: HQWYE356916MAR06

PATIENT
  Age: 30 Year
  Sex: Male

DRUGS (14)
  1. PANTOPRAZOLE SODIUM [Suspect]
     Indication: ABDOMINAL PAIN UPPER
     Dosage: 20 MG 1X PER 1 DAY ORAL
     Route: 048
     Dates: start: 20060121, end: 20060210
  2. PANTOPRAZOLE SODIUM [Suspect]
     Indication: DYSPEPSIA
     Dosage: 20 MG 1X PER 1 DAY ORAL
     Route: 048
     Dates: start: 20060121, end: 20060210
  3. PANTOPRAZOLE SODIUM [Suspect]
     Indication: PELVIC PAIN
     Dosage: 20 MG 1X PER 1 DAY ORAL
     Route: 048
     Dates: start: 20060121, end: 20060210
  4. PANTOPRAZOLE SODIUM [Suspect]
     Indication: ABDOMINAL PAIN UPPER
     Dosage: 20 MG 1X PER 1 DAY ORAL
     Route: 048
     Dates: start: 20060201, end: 20060228
  5. PANTOPRAZOLE SODIUM [Suspect]
     Indication: DYSPEPSIA
     Dosage: 20 MG 1X PER 1 DAY ORAL
     Route: 048
     Dates: start: 20060201, end: 20060228
  6. PANTOPRAZOLE SODIUM [Suspect]
     Indication: PELVIC PAIN
     Dosage: 20 MG 1X PER 1 DAY ORAL
     Route: 048
     Dates: start: 20060201, end: 20060228
  7. DIAZEPAM [Suspect]
     Indication: RESTLESSNESS
     Dosage: SEE IMAGE
     Route: 048
     Dates: start: 20060103, end: 20060210
  8. DIAZEPAM [Suspect]
     Indication: RESTLESSNESS
     Dosage: SEE IMAGE
     Route: 048
     Dates: start: 20060201, end: 20060228
  9. RISPERDAL [Concomitant]
  10. ERGENYL - SLOW RELEASE (VALPROATE SODIUM) [Concomitant]
  11. ERGENYL - SLOW RELEASE (VALPROATE SODIUM) [Concomitant]
  12. CIATYL-Z (ZUCLOPENTHIXOL HYDROCHLORIDE) [Concomitant]
  13. CIATYL-Z (ZUCLOPENTHIXOL HYDROCHLORIDE) [Concomitant]
  14. AKINETON [Concomitant]

REACTIONS (2)
  - ALCOHOLIC LIVER DISEASE [None]
  - HEPATITIS TOXIC [None]
